FAERS Safety Report 5303102-0 (Version None)
Quarter: 2007Q2

REPORT INFORMATION
  Report Type: 
  Country: None (occurrence: None)
  Receive Date: 20070420
  Receipt Date: 20070409
  Transmission Date: 20071010
  Serious: Yes (Hospitalization)
  Sender: FDA-Public Use
  Company Number: PHEH2007US04585

PATIENT
  Age: 54 Year
  Sex: Female

DRUGS (8)
  1. ZELNORM [Suspect]
     Indication: CROHN'S DISEASE
     Dosage: 6 MG, BID
     Route: 048
     Dates: start: 20040101, end: 20070401
  2. ISOCAL [Concomitant]
     Indication: CROHN'S DISEASE
     Dates: start: 20000101
  3. PREDNISONE TAB [Concomitant]
     Indication: CROHN'S DISEASE
     Dosage: 5 UNK, QD
     Dates: start: 20000101
  4. CYCLOSPORINE [Concomitant]
     Indication: LIVER TRANSPLANT
     Dosage: 100 UNK, BID
     Dates: start: 20000101
  5. ASATHIAPRINE [Concomitant]
     Indication: CROHN'S DISEASE
     Dosage: 50 UNK, UNK
  6. NORVASC [Concomitant]
     Dates: start: 20000101
  7. OXYCONTIN [Concomitant]
     Indication: PAIN
     Dosage: 100 MG, BID
  8. EFFEXOR XR [Concomitant]
     Indication: DEPRESSION
     Dosage: 150 UNK, BID
     Dates: start: 20000101

REACTIONS (2)
  - CARDIAC FAILURE CONGESTIVE [None]
  - RESPIRATORY TRACT INFECTION FUNGAL [None]
